FAERS Safety Report 14382153 (Version 4)
Quarter: 2018Q1

REPORT INFORMATION
  Report Type: Report from Study
  Country: US (occurrence: US)
  Receive Date: 20180112
  Receipt Date: 20180208
  Transmission Date: 20180509
  Serious: Yes (Hospitalization)
  Sender: FDA-Public Use
  Company Number: US-ACTELION-A-US2017-164815

PATIENT
  Age: 40 Year
  Sex: Female
  Weight: 62.59 kg

DRUGS (6)
  1. UPTRAVI [Concomitant]
     Active Substance: SELEXIPAG
     Dosage: UNK
     Dates: start: 201711
  2. VELETRI [Suspect]
     Active Substance: EPOPROSTENOL
     Indication: PULMONARY ARTERIAL HYPERTENSION
     Dosage: 10 NG/KG, PER MIN
     Route: 042
  3. SODIUM [Concomitant]
     Active Substance: SODIUM
  4. ADCIRCA [Concomitant]
     Active Substance: TADALAFIL
  5. OPSUMIT [Suspect]
     Active Substance: MACITENTAN
     Indication: PULMONARY ARTERIAL HYPERTENSION
     Dosage: 10 MG, QD
     Route: 048
     Dates: start: 20171102
  6. SILDENAFIL. [Concomitant]
     Active Substance: SILDENAFIL
     Dosage: 20 MG, TID

REACTIONS (18)
  - Dizziness [Unknown]
  - Intra-abdominal fluid collection [Unknown]
  - Diarrhoea [Unknown]
  - Back pain [Not Recovered/Not Resolved]
  - Pain [Unknown]
  - Headache [Unknown]
  - POEMS syndrome [Unknown]
  - Retching [Unknown]
  - Malaise [Unknown]
  - Cardiac failure acute [Recovering/Resolving]
  - Abdominal pain upper [Unknown]
  - Asthenia [Unknown]
  - Vomiting [Unknown]
  - Fluid retention [Unknown]
  - Dyspnoea [Unknown]
  - Abdominal distension [Unknown]
  - Inflammation [Unknown]
  - Abdominal cavity drainage [Unknown]

NARRATIVE: CASE EVENT DATE: 20171225
